FAERS Safety Report 8452578-9 (Version None)
Quarter: 2012Q2

REPORT INFORMATION
  Report Type: 
  Country: None (occurrence: None)
  Receive Date: 20120620
  Receipt Date: 20120417
  Transmission Date: 20120825
  Serious: No
  Sender: FDA-Public Use
  Company Number: US-VERTEX PHARMACEUTICALS INC.-AE-2012-005603

PATIENT
  Sex: Female
  Weight: 71.732 kg

DRUGS (7)
  1. BENAZEPRIL HYDROCHLORIDE [Concomitant]
  2. RIBAVIRIN [Concomitant]
     Indication: HEPATITIS C
     Dates: start: 20120319, end: 20120415
  3. PEGASYS [Concomitant]
     Dates: start: 20120416
  4. INCIVEK [Suspect]
     Indication: HEPATITIS C
     Route: 048
     Dates: start: 20120319
  5. PEGASYS [Concomitant]
     Indication: HEPATITIS C
     Dates: start: 20120319, end: 20120415
  6. RIBAVIRIN [Concomitant]
     Dates: start: 20120416
  7. NORVASC [Concomitant]

REACTIONS (1)
  - RED BLOOD CELL COUNT DECREASED [None]
